FAERS Safety Report 16780787 (Version 2)
Quarter: 2019Q4

REPORT INFORMATION
  Report Type: Spontaneous
  Country: US (occurrence: US)
  Receive Date: 20190906
  Receipt Date: 20191118
  Transmission Date: 20200122
  Serious: Yes (Other)
  Sender: FDA-Public Use
  Company Number: US-BIOVITRUM-2019US2751

PATIENT
  Sex: Female

DRUGS (5)
  1. DEX [Concomitant]
     Active Substance: UNSPECIFIED INGREDIENT
  2. KINERET [Suspect]
     Active Substance: ANAKINRA
  3. GAMIFANT [Suspect]
     Active Substance: EMAPALUMAB-LZSG
     Indication: FAMILIAL HAEMOPHAGOCYTIC LYMPHOHISTIOCYTOSIS
     Route: 042
  4. CIDOFOVIR. [Concomitant]
     Active Substance: CIDOFOVIR
  5. RUXOLITINIB [Concomitant]
     Active Substance: RUXOLITINIB

REACTIONS (3)
  - Hepatitis [Unknown]
  - Cholangitis [Unknown]
  - Gastrointestinal haemorrhage [Not Recovered/Not Resolved]
